FAERS Safety Report 7536040-3 (Version None)
Quarter: 2011Q2

REPORT INFORMATION
  Report Type: 
  Country: None (occurrence: None)
  Receive Date: 20110609
  Receipt Date: 20110531
  Transmission Date: 20111010
  Serious: Yes (Other)
  Sender: FDA-Public Use
  Company Number: KR-ASTELLAS-2011US002740

PATIENT
  Age: 49 Year
  Sex: Male

DRUGS (3)
  1. TARCEVA [Suspect]
     Indication: PANCREATIC CARCINOMA
     Dosage: 100 MG, UID/QD
     Route: 048
     Dates: start: 20110426, end: 20110502
  2. GEMCITABINE [Suspect]
     Indication: PANCREATIC CARCINOMA
     Dosage: UNK
     Route: 042
     Dates: start: 20110426
  3. TARCEVA [Suspect]
     Dosage: 100 MG, UID/QD
     Route: 048
     Dates: start: 20110506, end: 20110514

REACTIONS (1)
  - URTICARIA [None]
